FAERS Safety Report 24785169 (Version 1)
Quarter: 2024Q4

REPORT INFORMATION
  Report Type: Spontaneous
  Country: CN (occurrence: CN)
  Receive Date: 20241228
  Receipt Date: 20241228
  Transmission Date: 20250115
  Serious: Yes (Other)
  Sender: JOHNSON AND JOHNSON
  Company Number: CN-JNJFOC-20241266008

PATIENT
  Age: 73 Year
  Sex: Female
  Weight: 49 kg

DRUGS (1)
  1. DARZALEX [Suspect]
     Active Substance: DARATUMUMAB
     Indication: Hypertension
     Route: 041
     Dates: start: 20240813, end: 20240813

REACTIONS (2)
  - Myelosuppression [Unknown]
  - Off label use [Unknown]

NARRATIVE: CASE EVENT DATE: 20240824
